FAERS Safety Report 5608538-6 (Version None)
Quarter: 2008Q1

REPORT INFORMATION
  Report Type: 
  Country: None (occurrence: None)
  Receive Date: 20080125
  Receipt Date: 20080118
  Transmission Date: 20080703
  Serious: Yes (Life-Threatening)
  Sender: FDA-Public Use
  Company Number: GXKR2006GB06258

PATIENT
  Age: 47 Year
  Sex: Male

DRUGS (11)
  1. ATENOLOL [Suspect]
     Dosage: ORAL
     Route: 048
  2. DOXAZOSIN MESYLATE [Suspect]
     Dosage: ORAL
     Route: 048
  3. OMEPRAZOLE [Suspect]
     Dosage: ORAL
     Route: 048
  4. AMISULPRIDE                              (AMISULPRIDE) [Suspect]
     Dosage: ORAL
     Route: 048
  5. FENTANYL [Suspect]
     Dosage: INTRAVENOUS, TRANSDERMAL
     Route: 042
  6. HALOPERIDOL [Suspect]
  7. PANTOPRAZOLE SODIUM [Suspect]
  8. PROCYCLIDINE HYDROCHLORIDE 2MG TAB [Suspect]
     Dosage: ORAL
     Route: 048
  9. RIFAMPICIN [Suspect]
     Dosage: INTRAVENOUS
     Route: 042
  10. ZOPICLONE                         (ZOPICLONE) [Suspect]
  11. ZYVOX [Suspect]
     Indication: STAPHYLOCOCCAL INFECTION
     Dosage: 600 MG, BID, INTRAVENOUS
     Route: 042
     Dates: start: 20041017, end: 20041020

REACTIONS (2)
  - DRUG INTERACTION [None]
  - HYPERTENSION [None]
